FAERS Safety Report 5135955-3 (Version None)
Quarter: 2006Q4

REPORT INFORMATION
  Report Type: 
  Country: None (occurrence: None)
  Receive Date: 20061020
  Receipt Date: 20061005
  Transmission Date: 20070319
  Serious: Yes (Hospitalization)
  Sender: FDA-Public Use
  Company Number: S06-UKI-04269-01

PATIENT
  Age: 77 Year
  Sex: Female

DRUGS (9)
  1. CITALOPRAM HYDROBROMIDE [Suspect]
     Indication: DEPRESSION
     Dosage: 10 MG QD PO
     Route: 048
     Dates: start: 20060710, end: 20060815
  2. ALLOPURINOL [Concomitant]
  3. BUMETANIDE [Concomitant]
  4. CARVEDILOL [Concomitant]
  5. IMDUR [Concomitant]
  6. LEVOTHYROXINE SODIUM [Concomitant]
  7. LISINOPRIL [Concomitant]
  8. SIMVASTATIN [Concomitant]
  9. WARFARIN SODIUM [Concomitant]

REACTIONS (6)
  - CONFUSIONAL STATE [None]
  - INTERNATIONAL NORMALISED RATIO INCREASED [None]
  - LETHARGY [None]
  - LIVER FUNCTION TEST ABNORMAL [None]
  - RENAL IMPAIRMENT [None]
  - VAGINAL HAEMORRHAGE [None]
